FAERS Safety Report 4898771-3 (Version None)
Quarter: 2006Q1

REPORT INFORMATION
  Report Type: 
  Country: None (occurrence: None)
  Receive Date: 20060127
  Receipt Date: 20060113
  Transmission Date: 20060701
  Serious: Yes (Other)
  Sender: FDA-Public Use
  Company Number: 2005-01426

PATIENT
  Age: 44 Year
  Sex: Male

DRUGS (6)
  1. VELCADE [Suspect]
     Indication: MULTIPLE MYELOMA
     Dosage: 2.75 MG,
     Dates: start: 20041213, end: 20050324
  2. DOXIL [Concomitant]
  3. ZOMETA [Concomitant]
  4. LEXAPRO [Concomitant]
  5. ZOLOFT [Concomitant]
  6. PERCOCET [Concomitant]

REACTIONS (11)
  - DRUG DEPENDENCE [None]
  - FATIGUE [None]
  - FOLLICULITIS [None]
  - MUCOSAL INFLAMMATION [None]
  - MYALGIA [None]
  - NEUROPATHY PERIPHERAL [None]
  - PAIN IN EXTREMITY [None]
  - PYREXIA [None]
  - RASH PUSTULAR [None]
  - SKIN NODULE [None]
  - SUBCUTANEOUS ABSCESS [None]
